FAERS Safety Report 7917721-6 (Version None)
Quarter: 2011Q4

REPORT INFORMATION
  Report Type: 
  Country: None (occurrence: None)
  Receive Date: 20111116
  Receipt Date: 20111104
  Transmission Date: 20120403
  Serious: Yes (Hospitalization)
  Sender: FDA-Public Use
  Company Number: US-BAYER-2011-108920

PATIENT
  Age: 22 Year
  Sex: Female
  Weight: 79.365 kg

DRUGS (12)
  1. CODEINE SUL TAB [Concomitant]
     Indication: COUGH
     Dosage: 6.25-10 MG/1-2 TEASPOONS
  2. IBUPROFEN [Concomitant]
     Indication: HEADACHE
     Dosage: UNK UNK, PRN
  3. PROMETHAZINE [Concomitant]
     Indication: COUGH
     Dosage: 6.25-10MG/1-2 TEASPOONS
  4. YAZ [Suspect]
     Indication: CONTRACEPTION
     Dosage: UNK
     Route: 048
     Dates: start: 20080101, end: 20090801
  5. YASMIN [Suspect]
     Indication: CONTRACEPTION
     Dosage: UNK
     Route: 048
     Dates: start: 20060701, end: 20071001
  6. ACETAMINOPHEN [Concomitant]
     Indication: HEADACHE
     Dosage: UNK UNK, PRN
  7. AZITHROMYCIN [Concomitant]
     Dosage: 250 MG, UNK
     Route: 048
     Dates: start: 20070206
  8. TERCONAZOLE [Concomitant]
     Dosage: 80 MG, HS
     Route: 067
  9. SALINE NASAL SPRAY [Concomitant]
     Indication: NASAL CONGESTION
  10. YAZ [Suspect]
     Dosage: UNK
     Dates: start: 20080101, end: 20090801
  11. IBUPROFEN (ADVIL) [Concomitant]
     Indication: HEADACHE
     Dosage: UNK UNK, PRN
  12. O-CAL PRENATAL TABLET [Concomitant]
     Dosage: UNK
     Route: 048
     Dates: start: 20070206

REACTIONS (6)
  - CHOLECYSTITIS INFECTIVE [None]
  - CHOLECYSTITIS ACUTE [None]
  - HAEMOBILIA [None]
  - BACK PAIN [None]
  - SCAR [None]
  - CHOLELITHIASIS [None]
